FAERS Safety Report 7384743-6 (Version None)
Quarter: 2011Q1

REPORT INFORMATION
  Report Type: 
  Country: None (occurrence: None)
  Receive Date: 20110330
  Receipt Date: 20110318
  Transmission Date: 20110831
  Serious: Yes (Hospitalization)
  Sender: FDA-Public Use
  Company Number: PHHY2011JP14906

PATIENT
  Sex: Male

DRUGS (2)
  1. NEORAL [Suspect]
     Indication: PUSTULAR PSORIASIS
     Dosage: 150 MG,
     Route: 048
  2. VITAMIN D [Suspect]
     Indication: PUSTULAR PSORIASIS

REACTIONS (3)
  - HYPERCALCAEMIA [None]
  - RENAL IMPAIRMENT [None]
  - BLOOD CREATININE INCREASED [None]
